FAERS Safety Report 7518194-8 (Version None)
Quarter: 2011Q2

REPORT INFORMATION
  Report Type: 
  Country: None (occurrence: None)
  Receive Date: 20110531
  Receipt Date: 20110531
  Transmission Date: 20111010
  Serious: No
  Sender: FDA-Public Use
  Company Number: None

PATIENT
  Sex: Female

DRUGS (2)
  1. KLONOPIN [Suspect]
     Indication: PANIC DISORDER WITH AGORAPHOBIA
  2. KLONOPIN [Suspect]
     Indication: MAJOR DEPRESSION

REACTIONS (5)
  - DRUG INEFFECTIVE [None]
  - DIZZINESS [None]
  - PRODUCT SUBSTITUTION ISSUE [None]
  - ANXIETY [None]
  - AGITATION [None]
